FAERS Safety Report 11429889 (Version 1)
Quarter: 2015Q3

REPORT INFORMATION
  Report Type: Spontaneous
  Country: US (occurrence: US)
  Receive Date: 20150828
  Receipt Date: 20150828
  Transmission Date: 20151125
  Serious: No
  Sender: FDA-Public Use
  Company Number: US-ROCHE-1198002

PATIENT
  Sex: Female

DRUGS (2)
  1. RIBAVIRIN. [Suspect]
     Active Substance: RIBAVIRIN
     Indication: HEPATITIS C
     Dosage: DAILY DIVIDED DOSE
     Route: 065
     Dates: start: 20130118
  2. PEGASYS [Suspect]
     Active Substance: PEGINTERFERON ALFA-2A
     Indication: HEPATITIS C
     Route: 058
     Dates: start: 20130201, end: 20130719

REACTIONS (11)
  - Bone pain [Unknown]
  - Insomnia [Unknown]
  - Headache [Unknown]
  - Irritability [Unknown]
  - Drug dose omission [Unknown]
  - Fatigue [Unknown]
  - Abdominal pain [Unknown]
  - Dizziness postural [Unknown]
  - Sensory disturbance [Unknown]
  - Pruritus generalised [Unknown]
  - Aggression [Unknown]
